FAERS Safety Report 8059016-9 (Version None)
Quarter: 2012Q1

REPORT INFORMATION
  Report Type: 
  Country: None (occurrence: None)
  Receive Date: 20120120
  Receipt Date: 20110404
  Transmission Date: 20120608
  Serious: No
  Sender: FDA-Public Use
  Company Number: US-BAUSCH-2011BL002187

PATIENT
  Age: 72 Year
  Sex: Female

DRUGS (1)
  1. ALAWAY [Suspect]
     Indication: HYPERSENSITIVITY
     Route: 047
     Dates: start: 20110403, end: 20110404

REACTIONS (1)
  - EYE IRRITATION [None]
